FAERS Safety Report 9012286 (Version 2)
Quarter: 2013Q1

REPORT INFORMATION
  Report Type: Report from Study
  Country: EE (occurrence: EE)
  Receive Date: 20130114
  Receipt Date: 20130211
  Transmission Date: 20140127
  Serious: Yes (Hospitalization)
  Sender: FDA-Public Use
  Company Number: EE-AMGEN-ESTCT2013001480

PATIENT
  Age: 77 Year
  Sex: Female
  Weight: 80 kg

DRUGS (11)
  1. DENOSUMAB [Suspect]
     Indication: OSTEOPOROSIS POSTMENOPAUSAL
     Dosage: UNK UNK, Q6MO
     Route: 058
     Dates: start: 20080107
  2. VENTOLIN [Concomitant]
     Dosage: 200 MUG, AS NECESSARY
     Route: 055
     Dates: start: 20121125
  3. SERETIDE [Concomitant]
     Dosage: UNK
     Route: 055
     Dates: start: 20121125
  4. METFORMIN [Concomitant]
     Dosage: 1000 MG, UNK
     Route: 048
     Dates: start: 20120508
  5. CALCIGRAN [Concomitant]
     Dosage: UNK
     Route: 048
     Dates: start: 20050107
  6. ARCOXIA [Concomitant]
     Dosage: 60 MG, AS NECESSARY
     Route: 048
     Dates: start: 20050331
  7. CARDACE [Concomitant]
     Dosage: 10 MG, UNK
     Route: 048
     Dates: start: 20100331
  8. BETALOC [Concomitant]
     Dosage: UNK
     Route: 048
     Dates: start: 20100211
  9. CRESTOR [Concomitant]
     Dosage: 10 MG, UNK
     Route: 048
     Dates: start: 20100211
  10. HYPOTHIAZID [Concomitant]
     Dosage: 12.5 MG, UNK
     Route: 048
     Dates: start: 20121102
  11. LASIX [Concomitant]
     Dosage: 60 MG, UNK

REACTIONS (1)
  - Cerebrovascular accident [Recovered/Resolved with Sequelae]
